FAERS Safety Report 10396787 (Version 1)
Quarter: 2014Q3

REPORT INFORMATION
  Report Type: Spontaneous
  Country: IT (occurrence: IT)
  Receive Date: 20140820
  Receipt Date: 20140820
  Transmission Date: 20150326
  Serious: Yes (Hospitalization)
  Sender: FDA-Public Use
  Company Number: IT-BRISTOL-MYERS SQUIBB COMPANY-21301643

PATIENT
  Age: 90 Year
  Sex: Female

DRUGS (5)
  1. BISOPROLOL FUMARATE. [Concomitant]
     Active Substance: BISOPROLOL FUMARATE
  2. CIPRALEX [Concomitant]
     Active Substance: ESCITALOPRAM OXALATE
  3. LASIX [Concomitant]
     Active Substance: FUROSEMIDE
  4. COUMADIN [Suspect]
     Active Substance: WARFARIN SODIUM
     Indication: CEREBROVASCULAR ACCIDENT PROPHYLAXIS
     Dosage: 1 DF= 1 UNIT.
     Route: 048
     Dates: start: 20140101, end: 20140525
  5. ALLOPURINOL. [Concomitant]
     Active Substance: ALLOPURINOL

REACTIONS (2)
  - Subdural haemorrhage [Unknown]
  - Head injury [Unknown]

NARRATIVE: CASE EVENT DATE: 20140525
